FAERS Safety Report 13727504 (Version 1)
Quarter: 2017Q3

REPORT INFORMATION
  Report Type: Spontaneous
  Country: US (occurrence: US)
  Receive Date: 20170707
  Receipt Date: 20170707
  Transmission Date: 20171127
  Serious: Yes (Hospitalization)
  Sender: FDA-Public Use
  Company Number: None

PATIENT
  Age: 71 Year
  Sex: Male

DRUGS (2)
  1. AMIODARONE [Suspect]
     Active Substance: AMIODARONE
     Indication: VENTRICULAR TACHYCARDIA
     Route: 048
     Dates: start: 20160802, end: 20170618
  2. AMIODARONE [Suspect]
     Active Substance: AMIODARONE
     Indication: BUNDLE BRANCH BLOCK LEFT
     Route: 048
     Dates: start: 20160802, end: 20170618

REACTIONS (2)
  - Pneumonia [None]
  - Pulmonary toxicity [None]

NARRATIVE: CASE EVENT DATE: 20170618
